FAERS Safety Report 5378660-0 (Version None)
Quarter: 2007Q3

REPORT INFORMATION
  Report Type: 
  Country: None (occurrence: None)
  Receive Date: 20070702
  Receipt Date: 20070702
  Transmission Date: 20080115
  Serious: Yes (Hospitalization)
  Sender: FDA-Public Use
  Company Number: None

PATIENT
  Age: 54 Year
  Sex: Male
  Weight: 93 kg

DRUGS (1)
  1. COLISTIN SULFATE [Suspect]
     Indication: PANCREATITIS
     Dosage: 160MG Q12H IV
     Route: 042
     Dates: start: 20070621, end: 20070625

REACTIONS (1)
  - RENAL FAILURE ACUTE [None]
